FAERS Safety Report 7993082 (Version 4)
Quarter: 2012Q4

REPORT INFORMATION
  Report Type: Report from Study
  Country: DE (occurrence: DE)
  Receive Date: 20110616
  Receipt Date: 20121130
  Transmission Date: 20130627
  Serious: Yes (Hospitalization, Other)
  Sender: FDA-Public Use
  Company Number: DE-BIOGENIDEC-2011BI021192

PATIENT
  Age: 49 Year
  Sex: Female
  Weight: 60 kg

DRUGS (4)
  1. TYSABRI [Suspect]
     Indication: MULTIPLE SCLEROSIS
     Route: 042
     Dates: start: 20080328, end: 20100615
  2. CLEXANE [Concomitant]
     Route: 058
     Dates: start: 20100714
  3. PAROXETINE [Concomitant]
     Dates: start: 201001
  4. ZOPICLONE [Concomitant]
     Dates: start: 2007

REACTIONS (1)
  - Ovarian cancer [Not Recovered/Not Resolved]
